FAERS Safety Report 5482505-8 (Version None)
Quarter: 2007Q4

REPORT INFORMATION
  Report Type: 
  Country: None (occurrence: None)
  Receive Date: 20071011
  Receipt Date: 20070613
  Transmission Date: 20080405
  Serious: No
  Sender: FDA-Public Use
  Company Number: A0652666A

PATIENT
  Age: 59 Year
  Sex: Female

DRUGS (3)
  1. TYKERB [Suspect]
     Indication: BREAST CANCER
     Dates: start: 20070409, end: 20070430
  2. XELODA [Concomitant]
     Dates: end: 20070430
  3. OXYCODONE HCL [Concomitant]

REACTIONS (4)
  - CONFUSIONAL STATE [None]
  - DIARRHOEA [None]
  - FATIGUE [None]
  - VOMITING [None]
